FAERS Safety Report 18493671 (Version 1)
Quarter: 2020Q4

REPORT INFORMATION
  Report Type: Report from Study
  Country: US (occurrence: US)
  Receive Date: 20201112
  Receipt Date: 20201112
  Transmission Date: 20210114
  Serious: Yes (Death, Life-Threatening, Hospitalization, Other)
  Sender: FDA-Public Use
  Company Number: US-BRISTOL-MYERS SQUIBB COMPANY-BMS-2020-093112

PATIENT
  Age: 87 Year
  Sex: Male

DRUGS (1)
  1. APIXABAN [Suspect]
     Active Substance: APIXABAN
     Indication: PRODUCT USED FOR UNKNOWN INDICATION
     Dosage: UNK
     Route: 065

REACTIONS (8)
  - Respiratory failure [Unknown]
  - Mental status changes [Unknown]
  - Organ failure [Unknown]
  - Sepsis [Fatal]
  - Retroperitoneal abscess [Unknown]
  - Septic shock [Unknown]
  - Renal failure [Unknown]
  - Delirium [Unknown]
